FAERS Safety Report 12880213 (Version 3)
Quarter: 2017Q1

REPORT INFORMATION
  Report Type: Spontaneous
  Country: US (occurrence: US)
  Receive Date: 20161025
  Receipt Date: 20170224
  Transmission Date: 20170428
  Serious: Yes (Death, Life-Threatening, Hospitalization, Congenital Anomaly, Other)
  Sender: FDA-Public Use
  Company Number: PHHY2015US126684

PATIENT
  Sex: Female

DRUGS (2)
  1. ZOFRAN [Suspect]
     Active Substance: ONDANSETRON HYDROCHLORIDE
     Indication: FOETAL EXPOSURE DURING PREGNANCY
     Dosage: MOTHER^S DOSE: 4 MG
     Route: 064
  2. SYNTHROID [Concomitant]
     Active Substance: LEVOTHYROXINE SODIUM
     Indication: FOETAL EXPOSURE DURING PREGNANCY
     Dosage: UNK
     Route: 065

REACTIONS (13)
  - Aorta hypoplasia [Unknown]
  - Congenital anomaly [Fatal]
  - Left-to-right cardiac shunt [Unknown]
  - Right ventricular dilatation [Unknown]
  - Endocardial fibroelastosis [Unknown]
  - Aortic valve atresia [Unknown]
  - Right ventricular enlargement [Unknown]
  - Foetal exposure during pregnancy [Unknown]
  - Mitral valve atresia [Unknown]
  - Hypoplastic left heart syndrome [Unknown]
  - Aortic disorder [Unknown]
  - Atrial septal defect [Unknown]
  - Patent ductus arteriosus [Unknown]
